FAERS Safety Report 5672581-1 (Version None)
Quarter: 2008Q1

REPORT INFORMATION
  Report Type: 
  Country: None (occurrence: None)
  Receive Date: 20080319
  Receipt Date: 20080307
  Transmission Date: 20080703
  Serious: No
  Sender: FDA-Public Use
  Company Number: PHHY2008JP02336

PATIENT
  Age: 14 Year
  Sex: Male

DRUGS (3)
  1. CYCLOSPORINE [Suspect]
     Indication: STEM CELL TRANSPLANT
  2. METHOTREXATE [Concomitant]
     Indication: STEM CELL TRANSPLANT
  3. PREDNISOLONE [Concomitant]
     Indication: STEM CELL TRANSPLANT
     Dosage: 60 MG/DAY

REACTIONS (1)
  - RENAL DISORDER [None]
